FAERS Safety Report 6583267-3 (Version None)
Quarter: 2010Q1

REPORT INFORMATION
  Report Type: 
  Country: None (occurrence: None)
  Receive Date: 20100216
  Receipt Date: 20100210
  Transmission Date: 20100710
  Serious: Yes (Life-Threatening, Hospitalization, Disabling, Other)
  Sender: FDA-Public Use
  Company Number: A0843892A

PATIENT
  Age: 41 Year
  Sex: Male

DRUGS (5)
  1. ARIXTRA [Suspect]
     Indication: DEEP VEIN THROMBOSIS
     Dosage: 7.5MG PER DAY
     Route: 058
     Dates: start: 20060101
  2. PERCOCET [Concomitant]
  3. PREDNISONE [Concomitant]
  4. ZANTAC [Concomitant]
  5. VANCOMYCIN [Concomitant]
     Route: 048

REACTIONS (6)
  - COAGULOPATHY [None]
  - DRUG INEFFECTIVE [None]
  - EMBOLISM VENOUS [None]
  - INJECTION SITE EXTRAVASATION [None]
  - PULMONARY EMBOLISM [None]
  - THROMBOSIS [None]
